FAERS Safety Report 10892365 (Version 1)
Quarter: 2015Q1

REPORT INFORMATION
  Report Type: Spontaneous
  Country: ES (occurrence: ES)
  Receive Date: 20150306
  Receipt Date: 20150306
  Transmission Date: 20150721
  Serious: Yes (Hospitalization, Other)
  Sender: FDA-Public Use
  Company Number: ES-SHIRE-ES201501737

PATIENT
  Age: 78 Year
  Sex: Male

DRUGS (13)
  1. FOSRENOL [Suspect]
     Active Substance: LANTHANUM CARBONATE
     Indication: HAEMODIALYSIS
     Dosage: UNK UNK, UNKNOWN
     Route: 048
     Dates: start: 2012, end: 20140607
  2. ROYEN [Suspect]
     Active Substance: CALCIUM ACETATE
     Indication: CHRONIC KIDNEY DISEASE
     Dosage: UNK UNK, UNKNOWN
     Route: 048
     Dates: start: 20140114, end: 20140607
  3. VENTOLIN [Concomitant]
     Active Substance: ALBUTEROL SULFATE
     Indication: CHRONIC OBSTRUCTIVE PULMONARY DISEASE
     Dosage: 4 MG, UNKNOWN
     Route: 048
     Dates: start: 20120321
  4. CRISOMET [Concomitant]
     Indication: PAIN
     Dosage: 25 MG, UNKNOWN
     Route: 048
     Dates: start: 20120321
  5. LYRICA [Concomitant]
     Active Substance: PREGABALIN
     Indication: PAIN
     Dosage: 25 MG, 3X/DAY:TID
     Route: 048
     Dates: start: 20121218
  6. BIALFOLI [Concomitant]
     Indication: FOLATE DEFICIENCY
     Dosage: 5 MG, 1X/DAY:QD
     Route: 048
     Dates: start: 20140219
  7. CARDYL [Concomitant]
     Active Substance: ATORVASTATIN CALCIUM
     Indication: DYSLIPIDAEMIA
     Dosage: 10 MG, 1X/DAY:QD
     Route: 048
     Dates: start: 20120321
  8. CLEXANE DUO [Concomitant]
     Indication: PERIPHERAL ISCHAEMIA
     Dosage: 80 MG, 1X/DAY:QD
     Route: 058
     Dates: start: 20120424
  9. RESINCALCIO [Suspect]
     Active Substance: CALCIUM POLYSTYRENE SULFONATE
     Indication: CHRONIC KIDNEY DISEASE
     Dosage: UNK UNK, UNKNOWN
     Route: 048
     Dates: start: 20131010, end: 20140607
  10. HIDROXIL B12 B6 B1 [Concomitant]
     Active Substance: HYDROXOCOBALAMIN\PYRIDOXINE HYDROCHLORIDE\THIAMINE HYDROCHLORIDE
     Indication: PRODUCT USED FOR UNKNOWN INDICATION
     Dosage: 1 DF, UNKNOWN
     Route: 048
     Dates: start: 20121008
  11. MIMPARA [Concomitant]
     Active Substance: CINACALCET HYDROCHLORIDE
     Indication: HYPERPARATHYROIDISM
     Dosage: 1 CP
     Route: 048
     Dates: start: 20130213
  12. LORMETAZEPAM [Concomitant]
     Active Substance: LORMETAZEPAM
     Indication: INSOMNIA
     Dosage: 2 MG, 1X/DAY:QD
     Route: 048
     Dates: start: 20130716
  13. SEROXAT CR [Concomitant]
     Indication: DEPRESSION
     Dosage: 20 MG, 1X/DAY:QD
     Route: 048
     Dates: start: 20120321

REACTIONS (1)
  - Faecaloma [Recovered/Resolved]

NARRATIVE: CASE EVENT DATE: 20140607
